FAERS Safety Report 4873062-5 (Version None)
Quarter: 2006Q1

REPORT INFORMATION
  Report Type: 
  Country: None (occurrence: None)
  Receive Date: 20060104
  Receipt Date: 20060104
  Transmission Date: 20060701
  Serious: Yes (Other)
  Sender: FDA-Public Use
  Company Number: None

PATIENT
  Age: 36 Year
  Sex: Female
  Weight: 61.2356 kg

DRUGS (2)
  1. EFFEXOR XR [Suspect]
     Indication: ANXIETY
     Dosage: 150 MG    1X DAILY   PO
     Route: 048
     Dates: start: 20030801, end: 20060101
  2. EFFEXOR XR [Suspect]
     Indication: DEPRESSION
     Dosage: 150 MG    1X DAILY   PO
     Route: 048
     Dates: start: 20030801, end: 20060101

REACTIONS (6)
  - DRUG WITHDRAWAL SYNDROME [None]
  - DYSPEPSIA [None]
  - IMPAIRED WORK ABILITY [None]
  - LETHARGY [None]
  - MIGRAINE [None]
  - PARAESTHESIA [None]
